FAERS Safety Report 16491487 (Version 1)
Quarter: 2019Q2

REPORT INFORMATION
  Report Type: Report from Study
  Country: CN (occurrence: CN)
  Receive Date: 20190628
  Receipt Date: 20190628
  Transmission Date: 20190711
  Serious: Yes (Hospitalization, Other)
  Sender: FDA-Public Use
  Company Number: CN-ASTRAZENECA-2019SE83769

PATIENT
  Age: 22730 Day
  Sex: Female
  Weight: 60 kg

DRUGS (4)
  1. TRAMADOL. [Concomitant]
     Active Substance: TRAMADOL
     Indication: PAIN
     Dosage: ONE TABLET ONCE A DAY OR TWO TABLETS A DAY
     Route: 048
  2. TRAMADOL. [Concomitant]
     Active Substance: TRAMADOL
     Indication: PAIN
     Route: 048
  3. NIMESULIDE [Concomitant]
     Active Substance: NIMESULIDE
     Indication: PAIN
     Route: 048
  4. IRESSA [Suspect]
     Active Substance: GEFITINIB
     Indication: NON-SMALL CELL LUNG CANCER
     Route: 048
     Dates: start: 201710

REACTIONS (4)
  - EGFR gene mutation [Unknown]
  - Malignant neoplasm progression [Recovering/Resolving]
  - Cerebral infarction [Unknown]
  - Drug resistance [Unknown]

NARRATIVE: CASE EVENT DATE: 20181218
